FAERS Safety Report 8513916-1 (Version None)
Quarter: 2012Q3

REPORT INFORMATION
  Report Type: 
  Country: None (occurrence: None)
  Receive Date: 20120717
  Receipt Date: 20120709
  Transmission Date: 20120928
  Serious: Yes (Hospitalization)
  Sender: FDA-Public Use
  Company Number: US-BAYER-2012-061004

PATIENT
  Age: 38 Year
  Sex: Female
  Weight: 78.912 kg

DRUGS (7)
  1. YAZ [Suspect]
     Indication: CONTRACEPTION
     Dosage: UNK
     Dates: start: 20090910, end: 20100503
  2. ACETAMINOPHEN [Concomitant]
     Indication: PAIN
     Dosage: UNK
     Dates: start: 20100301
  3. OXYCODONE HCL [Concomitant]
  4. ACCUTANE [Concomitant]
     Indication: ACNE
     Dosage: UNK, 1 CAPSULE 2 TIMES DAILY
     Dates: start: 20100206, end: 20100502
  5. FISH OIL [Concomitant]
     Indication: SUPPLEMENTATION THERAPY
     Dosage: 100 MG, DAILY
     Dates: start: 20081001, end: 20100503
  6. YAZ [Suspect]
     Indication: ACNE
  7. IBUPROFEN [Concomitant]
     Indication: PAIN
     Dosage: UNK UNK, PRN
     Dates: start: 20100301, end: 20100501

REACTIONS (10)
  - INJURY [None]
  - MUSCULOSKELETAL PAIN [None]
  - VENA CAVA THROMBOSIS [None]
  - DYSPNOEA [None]
  - BACK PAIN [None]
  - ABDOMINAL PAIN [None]
  - PULMONARY EMBOLISM [None]
  - PAIN [None]
  - CHOLELITHIASIS [None]
  - CHEST PAIN [None]
